FAERS Safety Report 5302590-3 (Version None)
Quarter: 2007Q2

REPORT INFORMATION
  Report Type: 
  Country: None (occurrence: None)
  Receive Date: 20070419
  Receipt Date: 20070412
  Transmission Date: 20071010
  Serious: Yes (Hospitalization)
  Sender: FDA-Public Use
  Company Number: HU-ROXANE LABORATORIES, INC-2007-BP-05049RO

PATIENT
  Age: 40 Year
  Sex: Male
  Weight: 91 kg

DRUGS (4)
  1. AZATHIOPRINE [Suspect]
     Indication: COLITIS
     Dosage: 150 MG/DAY
     Route: 048
     Dates: start: 19930101
  2. AZATHIOPRINE [Suspect]
     Route: 048
     Dates: start: 20030601, end: 20030901
  3. METHYLPREDNISOLONE 4MG TAB [Suspect]
     Indication: COLITIS ULCERATIVE
     Dosage: 16 MG/DAY
  4. DOXYCYCLINE [Suspect]
     Route: 048

REACTIONS (33)
  - ABDOMINAL PAIN [None]
  - ACUTE RESPIRATORY DISTRESS SYNDROME [None]
  - ALANINE AMINOTRANSFERASE INCREASED [None]
  - ALVEOLITIS ALLERGIC [None]
  - ANOREXIA [None]
  - ASPARTATE AMINOTRANSFERASE INCREASED [None]
  - ASTHENIA [None]
  - BLOOD CHOLESTEROL INCREASED [None]
  - BLOOD LACTATE DEHYDROGENASE INCREASED [None]
  - BLOOD SODIUM INCREASED [None]
  - CARDIOMEGALY [None]
  - COLITIS ULCERATIVE [None]
  - COUGH [None]
  - CRYPTOGENIC ORGANISING PNEUMONIA [None]
  - DYSPNOEA EXERTIONAL [None]
  - FREQUENT BOWEL MOVEMENTS [None]
  - GAMMA-GLUTAMYLTRANSFERASE INCREASED [None]
  - HAEMATOCHEZIA [None]
  - HAEMATOCRIT DECREASED [None]
  - HAEMOGLOBIN DECREASED [None]
  - HEPATOMEGALY [None]
  - INTERSTITIAL LUNG DISEASE [None]
  - ORTHOSTATIC HYPOTENSION [None]
  - OXYGEN SATURATION DECREASED [None]
  - PCO2 DECREASED [None]
  - PLATELET COUNT INCREASED [None]
  - PLEURAL EFFUSION [None]
  - PO2 INCREASED [None]
  - PYREXIA [None]
  - RED BLOOD CELL SEDIMENTATION RATE INCREASED [None]
  - RESPIRATORY FAILURE [None]
  - WEIGHT DECREASED [None]
  - WHITE BLOOD CELL COUNT DECREASED [None]
